FAERS Safety Report 5591139-6 (Version None)
Quarter: 2008Q1

REPORT INFORMATION
  Report Type: 
  Country: None (occurrence: None)
  Receive Date: 20080110
  Receipt Date: 20071217
  Transmission Date: 20080703
  Serious: Yes (Death)
  Sender: FDA-Public Use
  Company Number: 2007SP025105

PATIENT
  Age: 70 Year
  Sex: Female

DRUGS (1)
  1. TEMODAL [Suspect]
     Indication: MALIGNANT GLIOMA
     Dosage: 75 MG/M2; QD; PO
     Route: 048
     Dates: start: 20070930, end: 20071111

REACTIONS (2)
  - NASOPHARYNGITIS [None]
  - PNEUMOCYSTIS JIROVECI PNEUMONIA [None]
